FAERS Safety Report 7367528-6 (Version None)
Quarter: 2011Q1

REPORT INFORMATION
  Report Type: 
  Country: None (occurrence: None)
  Receive Date: 20110322
  Receipt Date: 20100916
  Transmission Date: 20110831
  Serious: Yes (Hospitalization)
  Sender: FDA-Public Use
  Company Number: US-BAYER-201021542NA

PATIENT
  Sex: Female
  Weight: 75 kg

DRUGS (7)
  1. IBUPROFEN [Concomitant]
     Dosage: UNK
     Dates: start: 20090101
  2. YAZ [Suspect]
     Indication: PREMENSTRUAL SYNDROME
     Dosage: UNK UNK, QD
     Route: 048
     Dates: start: 20030101, end: 20090101
  3. CEPHADYN [Concomitant]
     Indication: HEADACHE
     Dosage: UNK
     Dates: start: 20090301
  4. TRIAMCINOLONE [Concomitant]
     Dosage: 0.1 %, UNK
     Dates: start: 20090501
  5. TOPAMAX [Concomitant]
     Dosage: UNK
     Dates: start: 20090301
  6. YASMIN [Suspect]
     Indication: PREMENSTRUAL SYNDROME
     Dosage: UNK UNK, QD
     Route: 048
     Dates: start: 20030101, end: 20090101
  7. BUPROPION HYDROCHLORIDE [Concomitant]
     Dosage: UNK
     Dates: start: 20080501, end: 20090701

REACTIONS (5)
  - CHOLELITHIASIS [None]
  - BILIARY COLIC [None]
  - CHOLECYSTITIS CHRONIC [None]
  - GALLBLADDER CHOLESTEROLOSIS [None]
  - PAIN [None]
